FAERS Safety Report 17623653 (Version 2)
Quarter: 2020Q3

REPORT INFORMATION
  Report Type: Spontaneous
  Country: US (occurrence: US)
  Receive Date: 20200403
  Receipt Date: 20200805
  Transmission Date: 20201102
  Serious: Yes (Hospitalization)
  Sender: FDA-Public Use
  Company Number: US-009507513-2004USA000626

PATIENT
  Sex: Female
  Weight: 64.1 kg

DRUGS (6)
  1. LENVATINIB MESYLATE [Suspect]
     Active Substance: LENVATINIB MESYLATE
     Indication: ENDOMETRIAL CANCER METASTATIC
     Dosage: UNK
     Dates: start: 201912, end: 202001
  2. LEVOTHYROXINE SODIUM. [Concomitant]
     Active Substance: LEVOTHYROXINE SODIUM
     Indication: HYPOTHYROIDISM
     Dosage: UNK
  3. ATORVASTATIN [Concomitant]
     Active Substance: ATORVASTATIN
     Indication: HYPERLIPIDAEMIA
     Dosage: UNK
  4. KEYTRUDA [Suspect]
     Active Substance: PEMBROLIZUMAB
     Indication: ENDOMETRIAL CANCER METASTATIC
     Dosage: UNK, A TOTAL OF 4 CYCLES
     Dates: start: 201912, end: 20200219
  5. UBIDECARENONE [Concomitant]
     Active Substance: UBIDECARENONE
     Dosage: UNK
  6. PRINIVIL [Concomitant]
     Active Substance: LISINOPRIL
     Indication: HYPERTENSION
     Dosage: 10 MILLIGRAM, BID

REACTIONS (20)
  - Somnolence [Unknown]
  - Weight decreased [Unknown]
  - Decreased appetite [Recovering/Resolving]
  - Epistaxis [Unknown]
  - Balance disorder [Unknown]
  - Dyspnoea [Unknown]
  - Urinary tract infection [Unknown]
  - Dehydration [Unknown]
  - Hypoaesthesia [Unknown]
  - Oedema peripheral [Not Recovered/Not Resolved]
  - Paraesthesia [Unknown]
  - Hypotension [Unknown]
  - Nausea [Unknown]
  - Fatigue [Unknown]
  - Haemorrhoids [Unknown]
  - Asthenia [Unknown]
  - Diarrhoea [Unknown]
  - Tremor [Not Recovered/Not Resolved]
  - Rash [Unknown]
  - Constipation [Unknown]

NARRATIVE: CASE EVENT DATE: 2010
